FAERS Safety Report 9377831 (Version 2)
Quarter: 2013Q3

REPORT INFORMATION
  Report Type: Spontaneous
  Country: FR (occurrence: FR)
  Receive Date: 20130701
  Receipt Date: 20130710
  Transmission Date: 20140515
  Serious: Yes (Hospitalization, Other)
  Sender: FDA-Public Use
  Company Number: FR-009507513-1306FRA011266

PATIENT
  Age: 71 Year
  Sex: Female

DRUGS (1)
  1. FOSAVANCE [Suspect]
     Dosage: 1 DF, QW
     Route: 048
     Dates: start: 2003, end: 2011

REACTIONS (2)
  - Pathological fracture [Recovered/Resolved]
  - Femur fracture [Recovered/Resolved]
